FAERS Safety Report 20122802 (Version 1)
Quarter: 2021Q4

REPORT INFORMATION
  Report Type: Spontaneous
  Country: IT (occurrence: IT)
  Receive Date: 20211129
  Receipt Date: 20211129
  Transmission Date: 20220303
  Serious: Yes (Other)
  Sender: FDA-Public Use
  Company Number: IT-SUN PHARMACEUTICAL INDUSTRIES LTD-2021RR-318734

PATIENT
  Age: 46 Year
  Sex: Female

DRUGS (3)
  1. LETROZOLE [Suspect]
     Active Substance: LETROZOLE
     Indication: Invasive lobular breast carcinoma
     Dosage: 2.5 MILLIGRAM, DAILY
     Route: 048
     Dates: start: 201809
  2. PALBOCICLIB [Suspect]
     Active Substance: PALBOCICLIB
     Indication: Invasive lobular breast carcinoma
     Dosage: 125 MILLIGRAM, DAILY
     Route: 048
     Dates: start: 201809
  3. LEUPROLIDE ACETATE [Suspect]
     Active Substance: LEUPROLIDE ACETATE
     Indication: Invasive lobular breast carcinoma
     Dosage: 3.75 MILLIGRAM,EVERY 28 DAYS
     Route: 030
     Dates: start: 201809

REACTIONS (4)
  - Fatigue [Unknown]
  - Arthralgia [Unknown]
  - Hot flush [Unknown]
  - Neutropenia [Recovering/Resolving]
